FAERS Safety Report 5105245-3 (Version None)
Quarter: 2006Q3

REPORT INFORMATION
  Report Type: 
  Country: None (occurrence: None)
  Receive Date: 20060911
  Receipt Date: 20060822
  Transmission Date: 20061208
  Serious: Yes (Other)
  Sender: FDA-Public Use
  Company Number: US200606002721

PATIENT
  Sex: Female

DRUGS (8)
  1. FORTEO [Suspect]
     Dates: start: 20050201
  2. FORTEO [Concomitant]
  3. TOPROL-XL [Concomitant]
  4. SINEMET /NET/(CARBIDOPA, LEVODOPA) [Concomitant]
  5. CALCIUM (CALCIUM) [Concomitant]
  6. ASA (ASPIRIN (ACETYLSALICYLIC ACID) UKNOWN FORMULATION) [Concomitant]
  7. ACYCLOVIR [Concomitant]
  8. FOLIC ACID (FOLIC ACID UNKNOWN MANUFACTURER) [Concomitant]

REACTIONS (2)
  - PHARMACEUTICAL PRODUCT COMPLAINT [None]
  - RETINAL VASCULAR OCCLUSION [None]
